FAERS Safety Report 7568928-1 (Version None)
Quarter: 2011Q2

REPORT INFORMATION
  Report Type: 
  Country: None (occurrence: None)
  Receive Date: 20110623
  Receipt Date: 20110614
  Transmission Date: 20111010
  Serious: Yes (Other)
  Sender: FDA-Public Use
  Company Number: US-AMGEN-USASP2011030589

PATIENT
  Age: 70 Year
  Sex: Female

DRUGS (3)
  1. TREXALL [Concomitant]
     Dosage: UNK
  2. ENBREL [Suspect]
     Indication: PSORIATIC ARTHROPATHY
  3. ENBREL [Suspect]
     Indication: RHEUMATOID ARTHRITIS
     Dosage: 50 MG, QWK
     Dates: start: 20000101

REACTIONS (11)
  - DIABETES MELLITUS [None]
  - NECK PAIN [None]
  - SINUSITIS [None]
  - INJECTION SITE HAEMATOMA [None]
  - FACIAL PAIN [None]
  - PRODUCTIVE COUGH [None]
  - HEADACHE [None]
  - INJECTION SITE PAIN [None]
  - MOBILITY DECREASED [None]
  - UPPER-AIRWAY COUGH SYNDROME [None]
  - MUSCULAR WEAKNESS [None]
